FAERS Safety Report 6832330 (Version 4)
Quarter: 2013Q2

REPORT INFORMATION
  Report Type: Spontaneous
  Country: AU (occurrence: AU)
  Receive Date: 20081204
  Receipt Date: 20130502
  Transmission Date: 20140414
  Serious: Yes (Disabling)
  Sender: FDA-Public Use
  Company Number: AU-MERCK-0811AUS00195

PATIENT
  Age: 13 Year
  Sex: Female
  Weight: 40 kg

DRUGS (1)
  1. SINGULAIR [Suspect]
     Dosage: 4 MG, QD
     Route: 048
     Dates: start: 20031020, end: 20060814

REACTIONS (4)
  - Self injurious behaviour [Not Recovered/Not Resolved]
  - Abnormal behaviour [Not Recovered/Not Resolved]
  - Theft [Not Recovered/Not Resolved]
  - Aggression [Not Recovered/Not Resolved]
